FAERS Safety Report 4319441-6 (Version None)
Quarter: 2004Q1

REPORT INFORMATION
  Report Type: 
  Country: None (occurrence: None)
  Receive Date: 20040318
  Receipt Date: 20040318
  Transmission Date: 20041129
  Serious: Yes (Other)
  Sender: FDA-Public Use
  Company Number: None

PATIENT
  Age: 48 Year
  Weight: 104.3273 kg

DRUGS (2)
  1. SARAFEM [Suspect]
     Indication: PREMENSTRUAL SYNDROME
     Dosage: ONCE A DAY
     Dates: start: 20020220, end: 20020620
  2. FLUOXETINE [Suspect]
     Indication: PREMENSTRUAL SYNDROME
     Dosage: ONCE A DAY
     Dates: start: 20020621, end: 20030320

REACTIONS (4)
  - ARTHRITIS [None]
  - JOINT STIFFNESS [None]
  - PHARMACEUTICAL PRODUCT COMPLAINT [None]
  - WEIGHT INCREASED [None]
